FAERS Safety Report 5419774-6 (Version None)
Quarter: 2007Q3

REPORT INFORMATION
  Report Type: 
  Country: None (occurrence: None)
  Receive Date: 20070820
  Receipt Date: 20070808
  Transmission Date: 20080115
  Serious: Yes (Hospitalization)
  Sender: FDA-Public Use
  Company Number: US-SANOFI-SYNTHELABO-A03200705024

PATIENT
  Age: 67 Year
  Sex: Female

DRUGS (7)
  1. PROTONIX [Concomitant]
     Dosage: UNK
     Route: 065
  2. NICARDIPINE HYDROCHLORIDE [Concomitant]
     Dosage: UNK
     Route: 065
  3. SYNTHROID [Concomitant]
     Dosage: UNK
     Route: 065
  4. HYZAAR [Concomitant]
     Dosage: UNK
     Route: 065
  5. COUMADIN [Concomitant]
     Dosage: UNK
     Route: 065
  6. ELOXATIN [Suspect]
     Indication: COLON CANCER
     Route: 042
     Dates: start: 20070711, end: 20070725
  7. VYTORIN [Concomitant]
     Dosage: UNK
     Route: 065

REACTIONS (1)
  - BLINDNESS TRANSIENT [None]
